FAERS Safety Report 10171913 (Version 1)
Quarter: 2014Q2

REPORT INFORMATION
  Report Type: Spontaneous
  Country: US (occurrence: US)
  Receive Date: 20140515
  Receipt Date: 20140515
  Transmission Date: 20141212
  Serious: Yes (Hospitalization, Other)
  Sender: FDA-Public Use
  Company Number: US-PFIZER INC-2014127854

PATIENT
  Age: 43 Year
  Sex: Female

DRUGS (12)
  1. NORVASC [Suspect]
     Dosage: 10 MG, DAILY
     Route: 048
  2. CEFTRIAXONE [Suspect]
     Dosage: UNK
  3. KETOROLAC TROMETHAMINE [Suspect]
     Dosage: UNK
  4. METHYLPREDNISOLONE [Suspect]
     Dosage: UNK
  5. DOXYCYCLINE HYCLATE [Suspect]
     Dosage: UNK
  6. VANCOCIN [Suspect]
     Indication: STAPHYLOCOCCAL INFECTION
     Dosage: 1000 MG IN SODIUM CHLORIDE 250 ML IVPB
     Route: 042
  7. HYDRODIURIL [Suspect]
     Dosage: 25 MG, DAILY
     Route: 048
  8. VICODIN [Suspect]
     Indication: PAIN
     Dosage: 1 DF, EVERY 4 HRS (5-500 MG PER TABLET EVERY 4 HOURS AS NEEDED)
     Route: 048
  9. PRINIVIL [Suspect]
     Dosage: 10 MG, DAILY
     Route: 048
  10. ZESTRIL [Suspect]
     Dosage: 10 MG, DAILY
     Route: 048
  11. DAPTOMYCIN [Suspect]
     Dosage: UNK
  12. CEFTAROLINE [Suspect]
     Dosage: UNK

REACTIONS (12)
  - Back pain [Not Recovered/Not Resolved]
  - Pyrexia [Unknown]
  - Inflammatory marker increased [Unknown]
  - Tubulointerstitial nephritis [Unknown]
  - Fibrosis [Unknown]
  - Atrophy [Unknown]
  - Arteriosclerosis [Unknown]
  - Intervertebral discitis [Unknown]
  - Osteomyelitis acute [Unknown]
  - Osteonecrosis [Unknown]
  - Asymptomatic bacteriuria [Unknown]
  - Blood creatinine increased [Recovered/Resolved]
